FAERS Safety Report 4324993-6 (Version None)
Quarter: 2004Q1

REPORT INFORMATION
  Report Type: 
  Country: None (occurrence: None)
  Receive Date: 20040322
  Receipt Date: 20040308
  Transmission Date: 20041129
  Serious: Yes (Other)
  Sender: FDA-Public Use
  Company Number: DE-SHR-04-022324

PATIENT
  Sex: Female

DRUGS (1)
  1. REFLUDAN [Suspect]
     Dosage: 50 MG IN HER BODY

REACTIONS (5)
  - ANURIA [None]
  - DIALYSIS [None]
  - HAEMATOMA [None]
  - HAEMORRHAGE [None]
  - OVERDOSE [None]
